FAERS Safety Report 16075427 (Version 1)
Quarter: 2019Q1

REPORT INFORMATION
  Report Type: Spontaneous
  Country: GB (occurrence: GB)
  Receive Date: 20190315
  Receipt Date: 20190315
  Transmission Date: 20190418
  Serious: Yes (Life-Threatening, Hospitalization)
  Sender: FDA-Public Use
  Company Number: GB-ACCORD-113179

PATIENT
  Age: 30 Year
  Sex: Male

DRUGS (9)
  1. ALLOPURINOL. [Concomitant]
     Active Substance: ALLOPURINOL
  2. PREDNISOLONE. [Concomitant]
     Active Substance: PREDNISOLONE
  3. SALBUTAMOL [Concomitant]
     Active Substance: ALBUTEROL
  4. THEOPHYLLINE [Concomitant]
     Active Substance: THEOPHYLLINE ANHYDROUS
  5. IBUPROFEN. [Concomitant]
     Active Substance: IBUPROFEN
  6. PARACETAMOL [Concomitant]
     Active Substance: ACETAMINOPHEN
  7. FOSTAIR [Concomitant]
     Active Substance: BECLOMETHASONE\FORMOTEROL
  8. MONTELUKAST [Concomitant]
     Active Substance: MONTELUKAST SODIUM
  9. ONDANSETRON [Suspect]
     Active Substance: ONDANSETRON
     Indication: VOMITING
     Dosage: 2 DOSES
     Route: 042
     Dates: start: 20181009, end: 20181009

REACTIONS (3)
  - Dizziness [Recovered/Resolved]
  - Tonic convulsion [Recovered/Resolved]
  - Ventricular fibrillation [Recovered/Resolved]

NARRATIVE: CASE EVENT DATE: 20181009
